FAERS Safety Report 8199691-1 (Version None)
Quarter: 2012Q1

REPORT INFORMATION
  Report Type: 
  Country: None (occurrence: None)
  Receive Date: 20120311
  Receipt Date: 20120301
  Transmission Date: 20120608
  Serious: Yes (Hospitalization, Other)
  Sender: FDA-Public Use
  Company Number: IT-ASTRAZENECA-2012SE14533

PATIENT
  Age: 21931 Day
  Sex: Male

DRUGS (10)
  1. POTASSIUM CHLORIDE [Concomitant]
  2. ACETYLSALICYLIC ACID SRT [Concomitant]
  3. CANRENONE [Concomitant]
  4. AMIODARONE HCL [Concomitant]
  5. CAPTOPRIL [Concomitant]
  6. HEPARIN [Concomitant]
  7. ATORVASTATIN [Concomitant]
  8. BRILIQUE [Suspect]
     Indication: CARDIOGENIC SHOCK
     Route: 048
     Dates: start: 20120219, end: 20120221
  9. FUROSEMIDE [Concomitant]
  10. PANTOPRAZOLE [Concomitant]

REACTIONS (2)
  - AGITATION [None]
  - DYSPNOEA [None]
